FAERS Safety Report 5153344-2 (Version None)
Quarter: 2006Q4

REPORT INFORMATION
  Report Type: 
  Country: None (occurrence: None)
  Receive Date: 20061117
  Receipt Date: 20061107
  Transmission Date: 20070319
  Serious: Yes (Hospitalization)
  Sender: FDA-Public Use
  Company Number: FR-BAYER-200611072BFR

PATIENT
  Sex: Female

DRUGS (1)
  1. GLUCOR [Suspect]
     Indication: DIABETES MELLITUS

REACTIONS (2)
  - GASTROINTESTINAL DISORDER [None]
  - INTESTINAL OBSTRUCTION [None]
